FAERS Safety Report 13017622 (Version 1)
Quarter: 2016Q4

REPORT INFORMATION
  Report Type: Spontaneous
  Country: US (occurrence: US)
  Receive Date: 20161212
  Receipt Date: 20161212
  Transmission Date: 20170207
  Serious: No
  Sender: FDA-Public Use
  Company Number: None

PATIENT
  Age: 69 Year
  Sex: Female
  Weight: 47.63 kg

DRUGS (11)
  1. FISH OIL [Concomitant]
     Active Substance: FISH OIL
  2. FLAXSEED [Concomitant]
     Active Substance: FLAX SEED
  3. HUMULIN N INSULIN [Concomitant]
  4. CLINDAMYCIN HCL 300 WATSON [Suspect]
     Active Substance: CLINDAMYCIN HYDROCHLORIDE
     Indication: TOOTHACHE
     Route: 048
     Dates: start: 20161110, end: 20161116
  5. VITAMIN D W/CALCIUM [Concomitant]
  6. EYE VITAMINS (AREDS) [Concomitant]
  7. NORVASC [Concomitant]
     Active Substance: AMLODIPINE BESYLATE
  8. ZIAC [Concomitant]
     Active Substance: BISOPROLOL FUMARATE\HYDROCHLOROTHIAZIDE
  9. RESTASIS [Concomitant]
     Active Substance: CYCLOSPORINE
  10. LISINOPRIL. [Concomitant]
     Active Substance: LISINOPRIL
  11. VITAMIN B12 [Concomitant]
     Active Substance: CYANOCOBALAMIN

REACTIONS (4)
  - Gastrooesophageal reflux disease [None]
  - Chest pain [None]
  - Oropharyngeal pain [None]
  - Pharyngeal oedema [None]

NARRATIVE: CASE EVENT DATE: 20161112
